FAERS Safety Report 4905476-9 (Version None)
Quarter: 2006Q1

REPORT INFORMATION
  Report Type: 
  Country: None (occurrence: None)
  Receive Date: 20060203
  Receipt Date: 20060119
  Transmission Date: 20060701
  Serious: Yes (Hospitalization)
  Sender: FDA-Public Use
  Company Number: 2006BI001028

PATIENT
  Age: 62 Year
  Sex: Female

DRUGS (1)
  1. AVONEX [Suspect]
     Indication: MULTIPLE SCLEROSIS
     Dosage: 30 UG;QW;IM
     Route: 030
     Dates: start: 20050915

REACTIONS (6)
  - CONTUSION [None]
  - DYSPNOEA [None]
  - FALL [None]
  - LOSS OF CONSCIOUSNESS [None]
  - PAIN [None]
  - RIB FRACTURE [None]
